FAERS Safety Report 25941143 (Version 1)
Quarter: 2025Q4

REPORT INFORMATION
  Report Type: Spontaneous
  Country: EU (occurrence: EU)
  Receive Date: 20251020
  Receipt Date: 20251020
  Transmission Date: 20260118
  Serious: Yes (Hospitalization, Other)
  Sender: CHEPLAPHARM
  Company Number: None

PATIENT
  Age: 79 Year
  Sex: Female

DRUGS (6)
  1. CAPECITABINE [Suspect]
     Active Substance: CAPECITABINE
     Indication: Breast cancer
     Dosage: 2GX2, 2 WEEKS OUT OF 3?DAILY DOSE: 4 GRAM
     Route: 048
     Dates: start: 202504
  2. CAPECITABINE [Suspect]
     Active Substance: CAPECITABINE
     Indication: Breast cancer
     Dosage: DAILY DOSE: 4 DOSAGE FORM
     Route: 048
     Dates: start: 20250830, end: 20250905
  3. CAPECITABINE [Suspect]
     Active Substance: CAPECITABINE
     Indication: Breast cancer
     Dosage: 1-0-1; 1500 MILLIGRAM?DAILY DOSE: 3000 DOSAGE FORM
     Route: 048
  4. MIANSERIN HYDROCHLORIDE [Concomitant]
     Active Substance: MIANSERIN HYDROCHLORIDE
     Dosage: 0-0-1?DAILY DOSE: 10 MILLIGRAM
  5. AMLODIPINE BESYLATE [Concomitant]
     Active Substance: AMLODIPINE BESYLATE
     Dosage: 1-0-0?DAILY DOSE: 5 MILLIGRAM
  6. XARELTO [Concomitant]
     Active Substance: RIVAROXABAN
     Dosage: 1-0-0?DAILY DOSE: 20 MILLIGRAM

REACTIONS (6)
  - Vascular purpura [Recovered/Resolved]
  - Systemic inflammatory response syndrome [Unknown]
  - Nail disorder [Unknown]
  - Asthenia [Unknown]
  - Tachycardia [Unknown]
  - Body temperature increased [Unknown]

NARRATIVE: CASE EVENT DATE: 20250801
